FAERS Safety Report 19764701 (Version 1)
Quarter: 2021Q3

REPORT INFORMATION
  Report Type: Spontaneous
  Country: US (occurrence: US)
  Receive Date: 20210830
  Receipt Date: 20210830
  Transmission Date: 20211014
  Serious: No
  Sender: FDA-Public Use
  Company Number: US-SA-2021SA282541

PATIENT
  Age: 67 Year
  Sex: Male

DRUGS (1)
  1. DUPIXENT [Suspect]
     Active Substance: DUPILUMAB
     Indication: SKIN DISORDER
     Dosage: 300MG, EVERY OTHER WEEK

REACTIONS (4)
  - Product use in unapproved indication [Unknown]
  - Needle issue [Unknown]
  - Injury associated with device [Unknown]
  - Drug dose omission by device [Unknown]
